FAERS Safety Report 4667941-1 (Version None)
Quarter: 2005Q2

REPORT INFORMATION
  Report Type: 
  Country: None (occurrence: None)
  Receive Date: 20050520
  Receipt Date: 20050506
  Transmission Date: 20051028
  Serious: Yes (Other)
  Sender: FDA-Public Use
  Company Number: US-KINGPHARMUSA00001-K200500605

PATIENT
  Sex: Male
  Weight: 27 kg

DRUGS (1)
  1. KETALAR [Suspect]
     Indication: ANAESTHESIA
     Dosage: 65 MG, SINGLE
     Route: 030
     Dates: start: 20050505, end: 20050505

REACTIONS (4)
  - HEART RATE DECREASED [None]
  - MUSCLE RIGIDITY [None]
  - MUSCULOSKELETAL STIFFNESS [None]
  - OXYGEN SATURATION DECREASED [None]
